FAERS Safety Report 9188914 (Version 1)
Quarter: 2013Q1

REPORT INFORMATION
  Report Type: Spontaneous
  Country: US (occurrence: US)
  Receive Date: 20130326
  Receipt Date: 20130326
  Transmission Date: 20140127
  Serious: Yes (Other)
  Sender: FDA-Public Use
  Company Number: PHHY2013US027927

PATIENT
  Age: 60 Year
  Sex: Male

DRUGS (4)
  1. METHYLENE BLUE [Suspect]
     Indication: VASOPLEGIA SYNDROME
     Dosage: 1 MG/KG PER HOUR
  2. METHYLENE BLUE [Suspect]
     Dosage: 0.5 MG/KG PER HOUR
  3. ESCITALOPRAM [Suspect]
     Indication: DEPRESSION
     Dosage: 20 MG, DAILY
     Route: 048
  4. TRAZODONE [Suspect]
     Indication: DEPRESSION
     Dosage: 100 MG DAILY
     Route: 048

REACTIONS (10)
  - Serotonin syndrome [Recovered/Resolved]
  - Hypotension [Recovered/Resolved]
  - Mydriasis [Recovered/Resolved]
  - Clonus [Recovered/Resolved]
  - Nystagmus [Recovered/Resolved]
  - Myoclonus [Recovered/Resolved]
  - Chills [Recovered/Resolved]
  - Hypertonia [Recovered/Resolved]
  - Body temperature increased [Recovered/Resolved]
  - Hypoxia [Recovered/Resolved]
